FAERS Safety Report 5497311-8 (Version None)
Quarter: 2007Q4

REPORT INFORMATION
  Report Type: 
  Country: None (occurrence: None)
  Receive Date: 20071025
  Receipt Date: 20060928
  Transmission Date: 20080405
  Serious: No
  Sender: FDA-Public Use
  Company Number: A0621830A

PATIENT
  Age: 60 Year
  Sex: Female

DRUGS (11)
  1. ADVAIR DISKUS 100/50 [Suspect]
     Indication: CHRONIC OBSTRUCTIVE PULMONARY DISEASE
     Dosage: 1PUFF TWICE PER DAY
     Route: 055
     Dates: end: 20060926
  2. LIPITOR [Suspect]
     Indication: BLOOD CHOLESTEROL INCREASED
     Dosage: 20MG PER DAY
     Dates: end: 20060801
  3. COMBIVENT [Concomitant]
  4. SPIRIVA [Concomitant]
  5. AGGRENOX [Concomitant]
  6. KERLONE [Concomitant]
  7. PREVACID [Concomitant]
  8. METANX [Concomitant]
  9. HYDROCHLOROTHIAZIDE [Concomitant]
  10. NORVASC [Concomitant]
  11. SYNTHROID [Concomitant]

REACTIONS (6)
  - CANDIDIASIS [None]
  - CHEST PAIN [None]
  - DYSPHONIA [None]
  - DYSPNOEA [None]
  - PAIN IN EXTREMITY [None]
  - PALPITATIONS [None]
